FAERS Safety Report 15723794 (Version 1)
Quarter: 2018Q4

REPORT INFORMATION
  Report Type: Spontaneous
  Country: US (occurrence: US)
  Receive Date: 20181214
  Receipt Date: 20181214
  Transmission Date: 20190205
  Serious: Yes (Hospitalization)
  Sender: FDA-Public Use
  Company Number: US-ALLERGAN-1857332US

PATIENT
  Age: 23 Year
  Sex: Female

DRUGS (1)
  1. MESALAZINE UNK [Suspect]
     Active Substance: MESALAMINE
     Indication: COLITIS ULCERATIVE
     Dosage: 4.8 G, QD
     Route: 065

REACTIONS (3)
  - Tracheobronchitis [Recovered/Resolved]
  - Clostridium difficile colitis [Not Recovered/Not Resolved]
  - Colitis ulcerative [Unknown]
